FAERS Safety Report 22221917 (Version 1)
Quarter: 2023Q2

REPORT INFORMATION
  Report Type: Spontaneous
  Country: US (occurrence: None)
  Receive Date: 20230418
  Receipt Date: 20230418
  Transmission Date: 20230722
  Serious: No
  Sender: FDA-Public Use
  Company Number: US-ALVOGEN-2022-ALVOGEN-120871

PATIENT
  Sex: Female

DRUGS (1)
  1. MACROBID [Suspect]
     Active Substance: NITROFURANTOIN\NITROFURANTOIN MONOHYDRATE
     Indication: Product used for unknown indication

REACTIONS (5)
  - Burning sensation [Not Recovered/Not Resolved]
  - Incorrect dose administered [Not Recovered/Not Resolved]
  - Abdominal discomfort [Unknown]
  - Condition aggravated [Unknown]
  - Product dose omission issue [Not Recovered/Not Resolved]
